FAERS Safety Report 8977992 (Version 1)
Quarter: 2012Q4

REPORT INFORMATION
  Report Type: 
  Country: BR (occurrence: BR)
  Receive Date: 20121219
  Receipt Date: 20121219
  Transmission Date: 20130627
  Serious: Yes (Hospitalization)
  Sender: FDA-Public Use
  Company Number: BR-PFIZER INC-2012321290

PATIENT
  Age: 84 Year
  Sex: Female

DRUGS (8)
  1. NORVASC [Suspect]
     Indication: CARDIAC DISORDER
     Dosage: 5 mg, 2x/day
     Route: 048
     Dates: start: 201211
  2. ATENSINA [Concomitant]
     Dosage: UNK
  3. ATENOLOL [Concomitant]
     Dosage: 25 mg, UNK
  4. SYNTHROID [Concomitant]
  5. DIACEREIN [Concomitant]
     Indication: JOINT DISORDER
  6. TYLEX [Concomitant]
     Dosage: UNK
  7. DIOVAN ^NOVARTIS^ [Concomitant]
     Dosage: 80 mg, UNK
  8. VITAMIN D [Concomitant]

REACTIONS (1)
  - Cardiac disorder [Unknown]
